FAERS Safety Report 8356625-4 (Version None)
Quarter: 2012Q2

REPORT INFORMATION
  Report Type: 
  Country: None (occurrence: None)
  Receive Date: 20120514
  Receipt Date: 20120504
  Transmission Date: 20120825
  Serious: Yes (Hospitalization)
  Sender: FDA-Public Use
  Company Number: FR-SANOFI-AVENTIS-2012SA031857

PATIENT
  Age: 76 Year
  Sex: Male

DRUGS (8)
  1. ALDOMET [Concomitant]
     Route: 065
  2. VERAPAMIL HYDROCHLORIDE [Concomitant]
     Route: 065
  3. SIMVASTATIN [Concomitant]
     Route: 065
  4. ALLOPURINOL [Concomitant]
     Route: 065
  5. OMEPRAZOLE [Concomitant]
     Route: 065
  6. ASPIRIN [Suspect]
     Route: 048
  7. RAMIPRIL [Suspect]
     Route: 048
     Dates: end: 20120319
  8. LASIX [Suspect]
     Route: 048
     Dates: end: 20120319

REACTIONS (2)
  - RENAL FAILURE ACUTE [None]
  - HYPERKALAEMIA [None]
